FAERS Safety Report 5940577-8 (Version None)
Quarter: 2008Q4

REPORT INFORMATION
  Report Type: 
  Country: None (occurrence: None)
  Receive Date: 20081104
  Receipt Date: 20081024
  Transmission Date: 20090506
  Serious: Yes (Hospitalization)
  Sender: FDA-Public Use
  Company Number: FR-ROCHE-593446

PATIENT
  Sex: Female

DRUGS (5)
  1. RIVOTRIL [Suspect]
     Dosage: FORMULATION: INJECTABLE SOLUTION, PATIENT RECEIVED CLONAZEPAM ON 30 AUG 08, 1 SEP 08 + 2 SEP 08
     Route: 042
     Dates: start: 20080827, end: 20080902
  2. TOPALGIC [Suspect]
     Route: 048
     Dates: start: 20080829, end: 20080905
  3. ZOPHREN [Suspect]
     Route: 042
     Dates: start: 20080826, end: 20080915
  4. THIOTEPA [Suspect]
     Route: 042
     Dates: start: 20080827, end: 20080829
  5. BUSULFAN [Suspect]
     Dosage: DRUG NAME: BUSILVEX, FORMULATION: INJECTABLE SOLUTION
     Route: 042
     Dates: start: 20080827, end: 20080901

REACTIONS (2)
  - DERMATITIS BULLOUS [None]
  - SKIN NECROSIS [None]
